FAERS Safety Report 13738253 (Version 1)
Quarter: 2017Q3

REPORT INFORMATION
  Report Type: Spontaneous
  Country: JP (occurrence: JP)
  Receive Date: 20170710
  Receipt Date: 20170710
  Transmission Date: 20171127
  Serious: Yes (Other)
  Sender: FDA-Public Use
  Company Number: PHHY2010JP06117

PATIENT

DRUGS (2)
  1. NELBON [Concomitant]
     Active Substance: NITRAZEPAM
  2. HYDERGINE [Suspect]
     Active Substance: ERGOLOID MESYLATES
     Dosage: UNK

REACTIONS (3)
  - Depressed level of consciousness [Unknown]
  - Fall [Unknown]
  - Dizziness [Unknown]
